FAERS Safety Report 21647956 (Version 2)
Quarter: 2024Q4

REPORT INFORMATION
  Report Type: Report from Study
  Country: US (occurrence: US)
  Receive Date: 20221128
  Receipt Date: 20241224
  Transmission Date: 20250114
  Serious: No
  Sender: NOVARTIS
  Company Number: US-002147023-NVSC2022US264183

PATIENT
  Age: 8 Year
  Sex: Female

DRUGS (1)
  1. ILARIS [Suspect]
     Active Substance: CANAKINUMAB
     Indication: Pyrexia
     Dosage: 120 MG, EVERY 4 WEEKS
     Route: 058

REACTIONS (2)
  - Pyrexia [Unknown]
  - Sinusitis [Unknown]

NARRATIVE: CASE EVENT DATE: 20221122
